FAERS Safety Report 17760718 (Version 1)
Quarter: 2020Q2

REPORT INFORMATION
  Report Type: Spontaneous
  Country: IT (occurrence: IT)
  Receive Date: 20200508
  Receipt Date: 20200508
  Transmission Date: 20200714
  Serious: Yes (Other)
  Sender: FDA-Public Use
  Company Number: IT-MYLANLABS-2020M1044932

PATIENT
  Age: 10 Year
  Sex: Male

DRUGS (2)
  1. IMATINIB. [Suspect]
     Active Substance: IMATINIB MESYLATE
     Indication: CHRONIC MYELOID LEUKAEMIA
     Dosage: 340 MG/M2, QD
     Route: 065
  2. IMATINIB. [Suspect]
     Active Substance: IMATINIB MESYLATE
     Dosage: 340 MG/M2/DAY;3WEEKS MONTH (THREE WEEKS ON AND ONE WEEK OFF,ON/OFF SCHEDULE)
     Route: 065

REACTIONS (2)
  - Gynaecomastia [Recovering/Resolving]
  - Pubertal failure [Recovering/Resolving]
